FAERS Safety Report 8514487-6 (Version None)
Quarter: 2012Q3

REPORT INFORMATION
  Report Type: 
  Country: None (occurrence: None)
  Receive Date: 20120717
  Receipt Date: 20120625
  Transmission Date: 20120928
  Serious: No
  Sender: FDA-Public Use
  Company Number: US-PFIZER INC-2012138447

PATIENT

DRUGS (2)
  1. CLEOCIN HYDROCHLORIDE [Suspect]
     Dosage: UNK
  2. LINCOMYCIN HCL [Suspect]
     Dosage: UNK

REACTIONS (1)
  - NO ADVERSE EVENT [None]
